FAERS Safety Report 16935121 (Version 2)
Quarter: 2019Q4

REPORT INFORMATION
  Report Type: Spontaneous
  Country: JP (occurrence: JP)
  Receive Date: 20191018
  Receipt Date: 20191209
  Transmission Date: 20200122
  Serious: Yes (Death, Life-Threatening, Hospitalization, Other)
  Sender: FDA-Public Use
  Company Number: JP-ASTRAZENECA-2019SF47558

PATIENT
  Age: 75 Year
  Sex: Female

DRUGS (5)
  1. SEROQUEL [Suspect]
     Active Substance: QUETIAPINE FUMARATE
     Indication: PRODUCT USED FOR UNKNOWN INDICATION
     Dosage: UNKNOWN DOSE AND FREQUENCY
     Route: 048
  2. MAGNESIUM OXIDE. [Concomitant]
     Active Substance: MAGNESIUM OXIDE
     Route: 048
  3. RISPERDAL [Concomitant]
     Active Substance: RISPERIDONE
  4. REFLEX [Concomitant]
     Active Substance: MIRTAZAPINE
  5. BENZALIN [Concomitant]

REACTIONS (6)
  - Pneumonia [Fatal]
  - Dysphagia [Unknown]
  - Loose tooth [Unknown]
  - Cachexia [Unknown]
  - Hypoglycaemia [Recovered/Resolved]
  - Loss of consciousness [Recovered/Resolved]

NARRATIVE: CASE EVENT DATE: 2019
